FAERS Safety Report 17882188 (Version 3)
Quarter: 2020Q3

REPORT INFORMATION
  Report Type: Report from Study
  Country: None (occurrence: KR)
  Receive Date: 20200610
  Receipt Date: 20200709
  Transmission Date: 20201103
  Serious: Yes (Hospitalization, Other)
  Sender: FDA-Public Use
  Company Number: KR-ABBVIE-20K-090-3434310-00

PATIENT
  Age: 48 Year
  Sex: Male
  Weight: 50 kg

DRUGS (17)
  1. MESALAZINE [Concomitant]
     Active Substance: MESALAMINE
     Route: 048
     Dates: start: 20180820
  2. DICAMAX [Concomitant]
     Indication: HYPOVITAMINOSIS
     Route: 048
     Dates: start: 20180607
  3. MESALAZINE [Concomitant]
     Active Substance: MESALAMINE
     Indication: BEHCET^S SYNDROME
     Route: 048
     Dates: start: 20180607, end: 20180819
  4. AZATHIOPRINE. [Concomitant]
     Active Substance: AZATHIOPRINE
     Indication: BEHCET^S SYNDROME
     Route: 048
     Dates: start: 20180607, end: 20181224
  5. HUMIRA [Suspect]
     Active Substance: ADALIMUMAB
     Indication: BEHCET^S SYNDROME
     Route: 058
     Dates: start: 20180820, end: 20180820
  6. DICAMAX?D [Concomitant]
     Active Substance: CALCIUM CARBONATE\CHOLECALCIFEROL
     Indication: BEHCET^S SYNDROME
     Route: 048
     Dates: start: 20181215
  7. TAMIPOOL [Concomitant]
     Active Substance: VITAMINS
     Indication: NUTRITIONAL SUPPLEMENTATION
     Route: 042
     Dates: start: 20181225
  8. SMECTA [Concomitant]
     Active Substance: MONTMORILLONITE
     Indication: DIARRHOEA
     Route: 065
     Dates: start: 20181230, end: 20190131
  9. COLCHICINE. [Concomitant]
     Active Substance: COLCHICINE
     Indication: BEHCET^S SYNDROME
     Route: 048
     Dates: start: 20180607
  10. CELECOXIB. [Concomitant]
     Active Substance: CELECOXIB
     Indication: PAIN MANAGEMENT
     Route: 048
     Dates: start: 20180614
  11. HUMIRA [Suspect]
     Active Substance: ADALIMUMAB
     Route: 058
     Dates: start: 20180903, end: 20180903
  12. WINUF PERI [Concomitant]
     Active Substance: AMINO ACIDS\DEXTROSE\ELECTROLYTES NOS\SOYBEAN OIL\VITAMINS
     Indication: NUTRITIONAL SUPPLEMENTATION
     Route: 042
     Dates: start: 20181225
  13. HUMIRA [Suspect]
     Active Substance: ADALIMUMAB
     Route: 058
     Dates: start: 20180917, end: 20181210
  14. RECOMIDE [Concomitant]
     Indication: BEHCET^S SYNDROME
     Route: 048
     Dates: start: 20180607
  15. MYPOL [Concomitant]
     Indication: BEHCET^S SYNDROME
     Route: 048
     Dates: start: 20181215
  16. PYRIDOXINE [Concomitant]
     Active Substance: PYRIDOXINE
     Indication: VITAMIN SUPPLEMENTATION
     Route: 048
     Dates: start: 20190102
  17. ERDOS [Concomitant]
     Active Substance: ERDOSTEINE
     Indication: PRODUCTIVE COUGH
     Route: 048
     Dates: start: 20181228, end: 20181230

REACTIONS (7)
  - Pyrexia [Recovered/Resolved]
  - Cough [Recovered/Resolved]
  - Hypophagia [Recovered/Resolved]
  - Disseminated tuberculosis [Recovered/Resolved]
  - Diarrhoea [Recovered/Resolved]
  - Abdominal pain upper [Recovered/Resolved]
  - Nausea [Recovered/Resolved]

NARRATIVE: CASE EVENT DATE: 20181224
